FAERS Safety Report 6311735-8 (Version None)
Quarter: 2009Q3

REPORT INFORMATION
  Report Type: 
  Country: None (occurrence: None)
  Receive Date: 20090813
  Receipt Date: 20090813
  Transmission Date: 20100115
  Serious: Yes (Disabling)
  Sender: FDA-Public Use
  Company Number: None

PATIENT
  Age: 81 Year
  Sex: Female
  Weight: 50.8029 kg

DRUGS (1)
  1. FOSAMAX [Suspect]
     Indication: OSTEOPENIA
     Dosage: ONE TABLET ONCE A WEEK ORAL PRIOR TO APRIL 2003
     Route: 048
     Dates: end: 20090401

REACTIONS (1)
  - OSTEONECROSIS [None]
